FAERS Safety Report 21355896 (Version 1)
Quarter: 2022Q3

REPORT INFORMATION
  Report Type: Spontaneous
  Country: CH (occurrence: CH)
  Receive Date: 20220920
  Receipt Date: 20220920
  Transmission Date: 20221027
  Serious: Yes (Hospitalization, Other)
  Sender: FDA-Public Use
  Company Number: CH-INSUD PHARMA-2209CH03687

PATIENT

DRUGS (4)
  1. TESTOSTERONE [Suspect]
     Active Substance: TESTOSTERONE
     Indication: Muscle building therapy
     Dosage: UNK
     Route: 030
  2. NANDROLONE [Suspect]
     Active Substance: NANDROLONE
     Indication: Muscle building therapy
     Dosage: UNK
     Route: 065
  3. METHANDROSTENOLONE [Suspect]
     Active Substance: METHANDROSTENOLONE
     Indication: Muscle building therapy
     Dosage: UNK
     Route: 065
  4. STANOZOLOL [Suspect]
     Active Substance: STANOZOLOL
     Indication: Muscle building therapy
     Dosage: UNK
     Route: 065

REACTIONS (11)
  - Pituitary apoplexy [Recovered/Resolved]
  - IIIrd nerve paralysis [Recovered/Resolved]
  - Headache [Unknown]
  - Visual acuity reduced [Unknown]
  - Eyelid ptosis [Recovered/Resolved]
  - Diplopia [Unknown]
  - Conjunctival oedema [Unknown]
  - Eye movement disorder [Recovered/Resolved]
  - Tumour haemorrhage [Recovered/Resolved]
  - Hypogonadism [Recovered/Resolved]
  - Drug abuse [Unknown]
